FAERS Safety Report 26201289 (Version 1)
Quarter: 2025Q4

REPORT INFORMATION
  Report Type: Spontaneous
  Country: EU (occurrence: EU)
  Receive Date: 20251226
  Receipt Date: 20251226
  Transmission Date: 20260117
  Serious: Yes (Congenital Anomaly)
  Sender: KYOWA
  Company Number: None

PATIENT

DRUGS (1)
  1. CRYSVITA [Suspect]
     Active Substance: BUROSUMAB-TWZA
     Indication: Hereditary hypophosphataemic rickets
     Dosage: UNK, INJECTABLE SOLUTION, 1 VIAL OF 1 ML
     Route: 065
     Dates: start: 20240918

REACTIONS (1)
  - Hyperparathyroidism tertiary [Not Recovered/Not Resolved]

NARRATIVE: CASE EVENT DATE: 20250312
